FAERS Safety Report 17099383 (Version 5)
Quarter: 2020Q4

REPORT INFORMATION
  Report Type: Spontaneous
  Country: US (occurrence: US)
  Receive Date: 20191202
  Receipt Date: 20201119
  Transmission Date: 20210113
  Serious: Yes (Other)
  Sender: FDA-Public Use
  Company Number: US-PFIZER INC-2019516407

PATIENT
  Age: 64 Year
  Sex: Female
  Weight: 77.1 kg

DRUGS (3)
  1. VIT D [Concomitant]
     Active Substance: VITAMIN D NOS
     Dosage: 2000 IU, 2X/DAY
     Dates: start: 201809
  2. CALCIUM [Concomitant]
     Active Substance: CALCIUM
     Dosage: 600 MG, 2X/DAY
     Dates: start: 201809
  3. IBRANCE [Suspect]
     Active Substance: PALBOCICLIB
     Indication: BREAST CANCER METASTATIC
     Dosage: 125 MG, CYCLIC ONCE A DAY FOR 21 DAYS, THEN 7 DAYS OFF
     Route: 048
     Dates: start: 20180915

REACTIONS (5)
  - Alopecia [Not Recovered/Not Resolved]
  - Nail disorder [Unknown]
  - Neutropenia [Recovered/Resolved]
  - Nail ridging [Unknown]
  - Pain of skin [Unknown]

NARRATIVE: CASE EVENT DATE: 201810
